FAERS Safety Report 24104917 (Version 1)
Quarter: 2024Q3

REPORT INFORMATION
  Report Type: Spontaneous
  Country: US (occurrence: US)
  Receive Date: 20240717
  Receipt Date: 20240717
  Transmission Date: 20241016
  Serious: Yes (Other)
  Sender: ROCHE
  Company Number: US-ROCHE-10000012968

PATIENT
  Age: 80 Year
  Sex: Female

DRUGS (3)
  1. ALECTINIB [Suspect]
     Active Substance: ALECTINIB
     Indication: Lung adenocarcinoma
     Route: 065
  2. CISPLATIN [Concomitant]
     Active Substance: CISPLATIN
  3. VINORELBINE [Concomitant]
     Active Substance: VINORELBINE TARTRATE

REACTIONS (1)
  - Cardiac failure [Unknown]
